FAERS Safety Report 15333175 (Version 1)
Quarter: 2018Q3

REPORT INFORMATION
  Report Type: Spontaneous
  Country: US (occurrence: US)
  Receive Date: 20180824
  Receipt Date: 20180824
  Transmission Date: 20181010
  Serious: Yes (Disabling)
  Sender: FDA-Public Use
  Company Number: None

PATIENT
  Age: 26 Year
  Sex: Female
  Weight: 54.9 kg

DRUGS (6)
  1. LAMICTAL [Suspect]
     Active Substance: LAMOTRIGINE
     Indication: ANXIETY
     Dosage: ?          QUANTITY:43 TABLET(S);?
     Route: 048
     Dates: start: 20180802
  2. ZOLOFT [Concomitant]
     Active Substance: SERTRALINE HYDROCHLORIDE
  3. VITAMIN B12 [Concomitant]
     Active Substance: CYANOCOBALAMIN
  4. INDERAL [Concomitant]
     Active Substance: PROPRANOLOL HYDROCHLORIDE
  5. NAPROXEN. [Concomitant]
     Active Substance: NAPROXEN
  6. LAMICTAL [Suspect]
     Active Substance: LAMOTRIGINE
     Indication: POST-TRAUMATIC STRESS DISORDER
     Dosage: ?          QUANTITY:43 TABLET(S);?
     Route: 048
     Dates: start: 20180802

REACTIONS (23)
  - Dizziness [None]
  - Grandiosity [None]
  - Anger [None]
  - Confusional state [None]
  - Agitation [None]
  - Feeling of despair [None]
  - Depression [None]
  - Nausea [None]
  - Logorrhoea [None]
  - Fear [None]
  - Night sweats [None]
  - Migraine [None]
  - Nightmare [None]
  - Malaise [None]
  - Headache [None]
  - Fatigue [None]
  - Mood swings [None]
  - Vomiting [None]
  - Crying [None]
  - Mania [None]
  - Anxiety [None]
  - Drug withdrawal syndrome [None]
  - Asthenia [None]

NARRATIVE: CASE EVENT DATE: 20180822
